FAERS Safety Report 20857392 (Version 1)
Quarter: 2022Q2

REPORT INFORMATION
  Report Type: Spontaneous
  Country: US (occurrence: US)
  Receive Date: 20220520
  Receipt Date: 20220520
  Transmission Date: 20220721
  Serious: No
  Sender: FDA-Public Use
  Company Number: US-SA-SAC20220520000261

PATIENT
  Age: 58 Year
  Sex: Female

DRUGS (16)
  1. DUPIXENT [Suspect]
     Active Substance: DUPILUMAB
     Indication: Asthma
     Dosage: 300 MG, QOW
     Route: 058
     Dates: start: 202203
  2. XIIDRA [Concomitant]
     Active Substance: LIFITEGRAST
  3. TIMOLOL [Concomitant]
     Active Substance: TIMOLOL
  4. LATANOPROST [Concomitant]
     Active Substance: LATANOPROST
     Dosage: FORMULATION: DROPS
  5. VITAMIN D3 [Concomitant]
     Active Substance: CHOLECALCIFEROL
  6. ZINC [Concomitant]
     Active Substance: ZINC
  7. OMEPRAZOLE [Concomitant]
     Active Substance: OMEPRAZOLE
  8. AMLODIPINE BESYLATE [Concomitant]
     Active Substance: AMLODIPINE BESYLATE
  9. MONTELUKAST SODIUM [Concomitant]
     Active Substance: MONTELUKAST SODIUM
  10. QNASL [Concomitant]
     Active Substance: BECLOMETHASONE DIPROPIONATE
     Dosage: QNASL 80 MCG HFA AER AD
  11. SYMBICORT [Concomitant]
     Active Substance: BUDESONIDE\FORMOTEROL FUMARATE DIHYDRATE
     Dosage: SYMBICORT 160-4.5MCG HFA AER AD
  12. TIOTROPIUM BROMIDE [Concomitant]
     Active Substance: TIOTROPIUM BROMIDE
     Dosage: 075MG
  13. TRULICITY [Concomitant]
     Active Substance: DULAGLUTIDE
     Dosage: TRULICITY 0.75MG/0.5 PEN INJCTR
  14. PEDIACARE COUGH-COLD [Concomitant]
     Active Substance: CHLORPHENIRAMINE\DEXTROMETHORPHAN HYDROBROMIDE\PSEUDOEPHEDRINE HYDROCHLORIDE
     Dosage: COUGH-COLD HBP 4 MG-30 MG TABLET
  15. CINNAMON\HERBALS [Concomitant]
     Active Substance: CINNAMON\HERBALS
  16. CETIRIZ-D [Concomitant]
     Dosage: CETIRI-D 5 MG-120MG TAB.SR 12H

REACTIONS (3)
  - Dyspnoea [Unknown]
  - Chest discomfort [Not Recovered/Not Resolved]
  - Product dose omission issue [Unknown]

NARRATIVE: CASE EVENT DATE: 20220101
